FAERS Safety Report 21486815 (Version 1)
Quarter: 2022Q4

REPORT INFORMATION
  Report Type: Spontaneous
  Country: US (occurrence: US)
  Receive Date: 20221020
  Receipt Date: 20221020
  Transmission Date: 20230113
  Serious: No
  Sender: FDA-Public Use
  Company Number: US-Santen Inc-2021-USA-011431

PATIENT

DRUGS (1)
  1. NATACYN [Suspect]
     Active Substance: NATAMYCIN
     Indication: Product used for unknown indication
     Route: 047
     Dates: start: 20190930

REACTIONS (3)
  - Foreign body sensation in eyes [Unknown]
  - Superficial injury of eye [Unknown]
  - Product quality issue [Unknown]
